FAERS Safety Report 4265673-5 (Version None)
Quarter: 2004Q1

REPORT INFORMATION
  Report Type: 
  Country: None (occurrence: None)
  Receive Date: 20040107
  Receipt Date: 20031107
  Transmission Date: 20041129
  Serious: Yes (Other)
  Sender: FDA-Public Use
  Company Number: SE-GLAXOSMITHKLINE-B0314545A

PATIENT
  Sex: Female

DRUGS (2)
  1. ZYBAN [Suspect]
     Indication: EX-SMOKER
     Dates: start: 20031013, end: 20031027
  2. OXYCODONE HCL [Concomitant]
     Indication: BACK PAIN
     Dosage: 180MG PER DAY

REACTIONS (12)
  - ANOREXIA [None]
  - ANXIETY [None]
  - DISTURBANCE IN ATTENTION [None]
  - DRY MOUTH [None]
  - DYSKINESIA [None]
  - DYSSTASIA [None]
  - HYPERHIDROSIS [None]
  - LACK OF SPONTANEOUS SPEECH [None]
  - MUSCLE TWITCHING [None]
  - NAUSEA [None]
  - PALLOR [None]
  - TREMOR [None]
